FAERS Safety Report 5595057-9 (Version None)
Quarter: 2008Q1

REPORT INFORMATION
  Report Type: 
  Country: None (occurrence: None)
  Receive Date: 20080117
  Receipt Date: 20080104
  Transmission Date: 20080703
  Serious: Yes (Hospitalization)
  Sender: FDA-Public Use
  Company Number: FR-ROCHE-540076

PATIENT
  Age: 17 Year
  Sex: Male

DRUGS (17)
  1. RIVOTRIL [Suspect]
     Indication: DRUG USE FOR UNKNOWN INDICATION
     Route: 048
     Dates: start: 20070227, end: 20070227
  2. RIVOTRIL [Suspect]
     Route: 048
     Dates: start: 20070228, end: 20070228
  3. RIVOTRIL [Suspect]
     Dosage: DOSE REDUCED.
     Route: 048
     Dates: start: 20070301, end: 20070304
  4. RIVOTRIL [Suspect]
     Route: 048
     Dates: start: 20070305, end: 20070305
  5. ACTISKENAN [Suspect]
     Indication: PAIN
     Route: 048
     Dates: start: 20070302, end: 20070308
  6. SKENAN [Suspect]
     Indication: PAIN
     Route: 048
     Dates: start: 20070302, end: 20070307
  7. NUBAIN [Suspect]
     Indication: PAIN
     Dosage: FORM: INJECTABLE SOLUTION
     Route: 042
     Dates: start: 20070227, end: 20070227
  8. NUBAIN [Suspect]
     Dosage: DOSAGE REPORTED AS CONTINUOUS INTRAVENOUS INJECTION/24 HOURS IN 24 CC OF G5
     Route: 042
     Dates: start: 20070228, end: 20070228
  9. NUBAIN [Suspect]
     Dosage: DOSAGE RECEIVED ON 1 MARCH 2007: 35 MG/24 HOURS IN CONTINUOUS INTRAVENOUS INJECTION (THAT IS DOSE O+
     Route: 042
     Dates: start: 20070301, end: 20070301
  10. PARACETAMOL [Concomitant]
     Route: 048
     Dates: start: 20070227, end: 20070301
  11. PARACETAMOL [Concomitant]
     Dosage: DOSE REDUCED
     Route: 048
     Dates: start: 20070302, end: 20070304
  12. PARACETAMOL [Concomitant]
     Route: 048
  13. NEURONTIN [Concomitant]
     Dosage: 400 MG AT 3:00 PM THEN 200 MG AFTER DIALYSIS.
     Route: 048
     Dates: start: 20070228, end: 20070228
  14. NEURONTIN [Concomitant]
     Route: 048
     Dates: start: 20070301, end: 20070301
  15. NEURONTIN [Concomitant]
     Dosage: AFTER DIALYSIS.
     Route: 048
     Dates: start: 20070302, end: 20070304
  16. NEURONTIN [Concomitant]
     Route: 048
  17. LOVENOX [Concomitant]

REACTIONS (3)
  - CONFUSIONAL STATE [None]
  - HYPERTHERMIA [None]
  - RESPIRATORY FAILURE [None]
